FAERS Safety Report 12601928 (Version 1)
Quarter: 2016Q3

REPORT INFORMATION
  Report Type: Spontaneous
  Country: FR (occurrence: FR)
  Receive Date: 20160728
  Receipt Date: 20160728
  Transmission Date: 20161109
  Serious: Yes (Other)
  Sender: FDA-Public Use
  Company Number: FR-ROCHE-1803182

PATIENT
  Age: 59 Year
  Sex: Female

DRUGS (10)
  1. KARDEGIC [Concomitant]
     Active Substance: ASPIRIN LYSINE
  2. METFORMIN [Concomitant]
     Active Substance: METFORMIN HYDROCHLORIDE
     Route: 065
  3. NOVORAPID [Concomitant]
     Active Substance: INSULIN ASPART
  4. MABTHERA [Suspect]
     Active Substance: RITUXIMAB
     Indication: LIMBIC ENCEPHALITIS
     Dosage: DAY 1
     Route: 041
     Dates: start: 20160111, end: 20160111
  5. LANTUS [Concomitant]
     Active Substance: INSULIN GLARGINE
  6. SOLUPRED (FRANCE) [Suspect]
     Active Substance: PREDNISOLONE
     Indication: PRODUCT USED FOR UNKNOWN INDICATION
     Route: 048
  7. ALTEIS [Concomitant]
     Active Substance: OLMESARTAN MEDOXOMIL
  8. FOSAVANCE [Concomitant]
     Active Substance: ALENDRONATE SODIUM\CHOLECALCIFEROL
  9. LANSOPRAZOLE. [Concomitant]
     Active Substance: LANSOPRAZOLE
  10. MABTHERA [Suspect]
     Active Substance: RITUXIMAB
     Indication: SYSTEMIC LUPUS ERYTHEMATOSUS
     Dosage: DAY 15
     Route: 041
     Dates: start: 20160116, end: 20160116

REACTIONS (2)
  - Neuropathy peripheral [Not Recovered/Not Resolved]
  - Off label use [Unknown]

NARRATIVE: CASE EVENT DATE: 201604
